FAERS Safety Report 5994040-9 (Version None)
Quarter: 2008Q4

REPORT INFORMATION
  Report Type: 
  Country: None (occurrence: None)
  Receive Date: 20081212
  Receipt Date: 20080904
  Transmission Date: 20090506
  Serious: No
  Sender: FDA-Public Use
  Company Number: US-ABBOTT-08P-163-0472661-00

PATIENT
  Sex: Female
  Weight: 90.8 kg

DRUGS (14)
  1. HUMIRA [Suspect]
     Indication: RHEUMATOID ARTHRITIS
     Route: 058
     Dates: start: 20060101
  2. BACTRIM [Suspect]
  3. PREDNISONE TAB [Concomitant]
     Indication: RHEUMATOID ARTHRITIS
     Route: 048
     Dates: start: 20070101
  4. METHOTREXATE [Concomitant]
     Indication: RHEUMATOID ARTHRITIS
     Route: 048
     Dates: start: 20060101
  5. VERAPAMIL [Concomitant]
     Indication: HYPERTENSION
     Route: 048
  6. INDAPAMIDE [Concomitant]
     Indication: HYPERTENSION
     Route: 048
  7. BIMATOPROST [Concomitant]
     Indication: GLAUCOMA
     Dosage: EACH EYE, AT NIGHT
     Dates: start: 20030101
  8. MONTELUKAST SODIUM [Concomitant]
     Indication: ASTHMA
     Route: 048
  9. CETIRIZINE HYDROCHLORIDE [Concomitant]
     Indication: HYPERSENSITIVITY
     Route: 048
  10. FLUTICASONE PROPIONATE [Concomitant]
     Indication: HYPERSENSITIVITY
     Dosage: 2 SPRAYS EACH NOSTRIL, 1 IN 1 D
  11. PULMICORT [Concomitant]
     Indication: ASTHMA
     Route: 055
  12. FOLIC ACID [Concomitant]
     Indication: VITAMIN SUPPLEMENTATION
     Route: 048
  13. ERGOCALCIFEROL [Concomitant]
     Indication: THYROID DISORDER
     Route: 048
  14. BACTRIM [Concomitant]

REACTIONS (2)
  - COUGH [None]
  - EMPHYSEMA [None]
